FAERS Safety Report 7412177-4 (Version None)
Quarter: 2011Q2

REPORT INFORMATION
  Report Type: 
  Country: None (occurrence: None)
  Receive Date: 20110413
  Receipt Date: 20110404
  Transmission Date: 20111010
  Serious: Yes (Other)
  Sender: FDA-Public Use
  Company Number: PT-ASTRAZENECA-2011SE18975

PATIENT
  Age: 64 Year
  Sex: Male
  Weight: 80 kg

DRUGS (1)
  1. SEROQUEL SR [Suspect]
     Indication: SCHIZOPHRENIA
     Route: 048
     Dates: start: 20110207, end: 20110209

REACTIONS (1)
  - HEPATOTOXICITY [None]
